FAERS Safety Report 17247180 (Version 1)
Quarter: 2020Q1

REPORT INFORMATION
  Report Type: Spontaneous
  Country: US (occurrence: US)
  Receive Date: 20200108
  Receipt Date: 20200108
  Transmission Date: 20200409
  Serious: No
  Sender: FDA-Public Use
  Company Number: US-PFIZER INC-2020006159

PATIENT
  Sex: Female

DRUGS (5)
  1. LAMICTAL [Interacting]
     Active Substance: LAMOTRIGINE
     Dosage: UNK
  2. VRAYLAR [Interacting]
     Active Substance: CARIPRAZINE
     Dosage: UNK
  3. XANAX [Suspect]
     Active Substance: ALPRAZOLAM
     Dosage: UNK
  4. TRINTELLIX [Interacting]
     Active Substance: VORTIOXETINE HYDROBROMIDE
     Indication: DEPRESSION
     Dosage: UNK
  5. TRINTELLIX [Interacting]
     Active Substance: VORTIOXETINE HYDROBROMIDE
     Indication: ANXIETY

REACTIONS (3)
  - Drug interaction [Unknown]
  - Fatigue [Unknown]
  - Impaired work ability [Unknown]
